FAERS Safety Report 16408930 (Version 1)
Quarter: 2019Q2

REPORT INFORMATION
  Report Type: Spontaneous
  Country: US (occurrence: US)
  Receive Date: 20190610
  Receipt Date: 20190610
  Transmission Date: 20190711
  Serious: No
  Sender: FDA-Public Use
  Company Number: US-BAYER-2019-111208

PATIENT
  Age: 70 Year
  Sex: Male
  Weight: 98 kg

DRUGS (5)
  1. PRUNELLA VULGARIS EXTRACT [Concomitant]
     Dosage: UNK
  2. BENEFIBER [DEXTRIN] [Concomitant]
     Dosage: UNK
  3. ALOE VERA JUICE [Concomitant]
     Dosage: UNK
  4. MIRALAX [Suspect]
     Active Substance: POLYETHYLENE GLYCOL 3350
     Indication: GASTROINTESTINAL DISORDER
     Dosage: ONCE IN THE MORNING IN A CUP OF COFFEE DOSE
     Route: 048
     Dates: start: 20190526, end: 20190606
  5. EQUATE ALLERGY RELIEF [CETIRIZINE HYDROCHLORIDE] [Concomitant]
     Dosage: UNK

REACTIONS (1)
  - Product use issue [Unknown]

NARRATIVE: CASE EVENT DATE: 20190526
